FAERS Safety Report 6267917-7 (Version None)
Quarter: 2009Q3

REPORT INFORMATION
  Report Type: 
  Country: None (occurrence: None)
  Receive Date: 20090714
  Receipt Date: 20090710
  Transmission Date: 20100115
  Serious: Yes (Life-Threatening, Hospitalization)
  Sender: FDA-Public Use
  Company Number: JP-B.I. PHARMACEUTICALS,INC./RIDGEFIELD-2009-BP-07933NB

PATIENT
  Age: 81 Year
  Sex: Female
  Weight: 65 kg

DRUGS (6)
  1. PRAMIPEXOLE DIHYDROCHLORIDE [Suspect]
     Indication: PARKINSON'S DISEASE
     Dosage: 0.5 MG
     Route: 048
     Dates: start: 20090205, end: 20090415
  2. PLETAL [Concomitant]
     Indication: CEREBRAL INFARCTION
     Dosage: 200 MG
     Route: 048
     Dates: start: 20070927, end: 20090415
  3. YOKU-KAN-SAN [Concomitant]
     Indication: DELIRIUM
     Dosage: 5 G
     Route: 048
     Dates: start: 20080509, end: 20090415
  4. SEROQUEL [Concomitant]
     Indication: DELIRIUM
     Dosage: 12.5 MG
     Route: 048
     Dates: start: 20070927, end: 20090415
  5. DOGMATYL [Concomitant]
     Indication: DEPRESSION
     Dosage: 100 MG
     Route: 048
     Dates: start: 20080613, end: 20090415
  6. ARICEPT [Concomitant]
     Indication: DEMENTIA
     Dosage: 5 MG
     Route: 048
     Dates: start: 20081112, end: 20090415

REACTIONS (1)
  - ILEUS [None]
